FAERS Safety Report 11787764 (Version 2)
Quarter: 2015Q4

REPORT INFORMATION
  Report Type: Spontaneous
  Country: NL (occurrence: NL)
  Receive Date: 20151130
  Receipt Date: 20151211
  Transmission Date: 20160305
  Serious: Yes (Hospitalization)
  Sender: FDA-Public Use
  Company Number: NL-OTSUKA-2015_012609

PATIENT
  Age: 68 Year
  Sex: Female
  Weight: 70.2 kg

DRUGS (1)
  1. DACOGEN [Suspect]
     Active Substance: DECITABINE
     Indication: ACUTE MYELOID LEUKAEMIA
     Dosage: 38 MG, IN 1 DAY CYCLE 2
     Route: 042
     Dates: start: 20150907

REACTIONS (3)
  - Hepatosplenic candidiasis [Recovered/Resolved]
  - Cardiac failure [Not Recovered/Not Resolved]
  - Lung infection [Not Recovered/Not Resolved]

NARRATIVE: CASE EVENT DATE: 20151010
